FAERS Safety Report 8800886 (Version 2)
Quarter: 2012Q4

REPORT INFORMATION
  Report Type: 
  Country: FR (occurrence: FR)
  Receive Date: 20120921
  Receipt Date: 20121113
  Transmission Date: 20130627
  Serious: Yes (Other)
  Sender: FDA-Public Use
  Company Number: FR-PFIZER INC-2012227603

PATIENT
  Age: 31 Year
  Sex: Male
  Weight: 63 kg

DRUGS (2)
  1. SALAZOPYRINE [Suspect]
     Indication: SPONDYLOARTHROPATHY
     Dosage: 4 DF daily
     Dates: start: 20040303
  2. HUMIRA [Suspect]
     Indication: SPONDYLOARTHROPATHY
     Dosage: 40 mg, weekly
     Dates: start: 20080827

REACTIONS (2)
  - Clavicle fracture [Recovering/Resolving]
  - Fracture nonunion [Recovering/Resolving]
